FAERS Safety Report 13437611 (Version 1)
Quarter: 2017Q2

REPORT INFORMATION
  Report Type: Spontaneous
  Country: US (occurrence: US)
  Receive Date: 20170413
  Receipt Date: 20170413
  Transmission Date: 20170830
  Serious: No
  Sender: FDA-Public Use
  Company Number: US-SA-2016SA205055

PATIENT
  Age: 66 Year
  Sex: Female
  Weight: 127 kg

DRUGS (1)
  1. ALLEGRA-D [Suspect]
     Active Substance: FEXOFENADINE\PSEUDOEPHEDRINE
     Indication: RHINORRHOEA
     Route: 048

REACTIONS (1)
  - Drug ineffective [Unknown]
